FAERS Safety Report 17423960 (Version 1)
Quarter: 2020Q1

REPORT INFORMATION
  Report Type: Not Available
  Country: US (occurrence: US)
  Receive Date: 20200217
  Receipt Date: 20200217
  Transmission Date: 20200409
  Serious: Yes (Hospitalization)
  Sender: FDA-Public Use
  Company Number: US-NEUROCRINE BIOSCIENCES INC.-2020NBI00437

PATIENT
  Age: 56 Year
  Sex: Female

DRUGS (23)
  1. RENVELA [Concomitant]
     Active Substance: SEVELAMER CARBONATE
  2. AMLODIPINE [Concomitant]
     Active Substance: AMLODIPINE BESYLATE
  3. VENTOLIN (PROAIR) [Concomitant]
  4. INGREZZA [Suspect]
     Active Substance: VALBENAZINE
     Route: 048
     Dates: start: 20190822
  5. INSULIN [Concomitant]
     Active Substance: INSULIN NOS
  6. CARVEDILOL. [Concomitant]
     Active Substance: CARVEDILOL
  7. CLONIDINE. [Concomitant]
     Active Substance: CLONIDINE
  8. LEVEMIR [Concomitant]
     Active Substance: INSULIN DETEMIR
  9. LYRICA [Concomitant]
     Active Substance: PREGABALIN
  10. TYLENOL [Concomitant]
     Active Substance: ACETAMINOPHEN
  11. INGREZZA [Suspect]
     Active Substance: VALBENAZINE
     Indication: TARDIVE DYSKINESIA
     Route: 048
     Dates: start: 20190814, end: 20190821
  12. NOVOLOG [Concomitant]
     Active Substance: INSULIN ASPART
  13. VITAMIN B COMPLEX [Concomitant]
     Active Substance: CYANOCOBALAMIN\DEXPANTHENOL\NIACINAMIDE\PYRIDOXINE HYDROCHLORIDE\RIBOFLAVIN 5^-PHOSPHATE SODIUM\THIAMINE HYDROCHLORIDE\VITAMIN B COMPLEX
  14. CITALOPRAM [Concomitant]
     Active Substance: CITALOPRAM HYDROBROMIDE
  15. CALCITRIOL. [Concomitant]
     Active Substance: CALCITRIOL
  16. ALLOPURINOL. [Concomitant]
     Active Substance: ALLOPURINOL
  17. AMITRIPTYLINE [Concomitant]
     Active Substance: AMITRIPTYLINE
  18. DICYCLOMINE [Concomitant]
     Active Substance: DICYCLOMINE HYDROCHLORIDE
  19. PRASUGREL. [Concomitant]
     Active Substance: PRASUGREL
  20. GENTAMICIN. [Concomitant]
     Active Substance: GENTAMICIN
  21. LISINOPRIL. [Concomitant]
     Active Substance: LISINOPRIL
  22. ROSUVASTATIN. [Concomitant]
     Active Substance: ROSUVASTATIN
  23. CARBIDOPA-LEVODOPA [Concomitant]
     Active Substance: CARBIDOPA\LEVODOPA

REACTIONS (3)
  - Asthenia [Unknown]
  - Memory impairment [Unknown]
  - Fungal cystitis [Unknown]

NARRATIVE: CASE EVENT DATE: 20191028
